FAERS Safety Report 11719520 (Version 1)
Quarter: 2015Q4

REPORT INFORMATION
  Report Type: Spontaneous
  Country: US (occurrence: US)
  Receive Date: 20151110
  Receipt Date: 20151110
  Transmission Date: 20160304
  Serious: No
  Sender: FDA-Public Use
  Company Number: US-CTI_01742_2015

PATIENT
  Age: 52 Year
  Sex: Female

DRUGS (10)
  1. BETHKIS [Suspect]
     Active Substance: TOBRAMYCIN
     Indication: EMPHYSEMA
     Dosage: 300 MG/ 4 ML, BID
     Route: 055
     Dates: start: 20150624
  2. ALBUTEROL. [Concomitant]
     Active Substance: ALBUTEROL
     Dosage: DF
  3. TRAZODONE [Concomitant]
     Active Substance: TRAZODONE HYDROCHLORIDE
     Dosage: DF
  4. SERTRALINE [Concomitant]
     Active Substance: SERTRALINE HYDROCHLORIDE
     Dosage: DF
  5. NITROFURANTIN [Concomitant]
     Active Substance: NITROFURANTOIN
     Dosage: DF
  6. FLUCONAZOLE. [Concomitant]
     Active Substance: FLUCONAZOLE
     Dosage: DF
  7. BETHKIS [Suspect]
     Active Substance: TOBRAMYCIN
     Indication: OESOPHAGITIS
     Dosage: 300 MG/ 4 ML, BID
     Route: 055
     Dates: start: 20150624
  8. TRIAMCINOLON [Concomitant]
     Dosage: DF
  9. ADVAIR HFA [Concomitant]
     Active Substance: FLUTICASONE PROPIONATE\SALMETEROL XINAFOATE
     Dosage: DF
  10. ERYTHROMYCIN. [Concomitant]
     Active Substance: ERYTHROMYCIN
     Dosage: DF

REACTIONS (6)
  - Cough [Recovering/Resolving]
  - Contusion [Recovering/Resolving]
  - Musculoskeletal chest pain [Recovering/Resolving]
  - Dizziness [Recovering/Resolving]
  - Dysphonia [Unknown]
  - Off label use [Not Recovered/Not Resolved]

NARRATIVE: CASE EVENT DATE: 20150624
